FAERS Safety Report 9633412 (Version 2)
Quarter: 2013Q4

REPORT INFORMATION
  Report Type: Spontaneous
  Country: US (occurrence: US)
  Receive Date: 20131021
  Receipt Date: 20131021
  Transmission Date: 20140711
  Serious: Yes (Other)
  Sender: FDA-Public Use
  Company Number: US-BRISTOL-MYERS SQUIBB COMPANY-19348168

PATIENT
  Age: 51 Year
  Sex: Male

DRUGS (2)
  1. YERVOY [Suspect]
     Dosage: 4 DOSES
  2. ATIVAN [Concomitant]

REACTIONS (1)
  - Colitis [Unknown]
